FAERS Safety Report 17517911 (Version 1)
Quarter: 2020Q1

REPORT INFORMATION
  Report Type: Spontaneous
  Country: US (occurrence: US)
  Receive Date: 20200309
  Receipt Date: 20200309
  Transmission Date: 20200409
  Serious: Yes (Other)
  Sender: FDA-Public Use
  Company Number: US-RISING PHARMACEUTICALS, INC.-2020RIS00089

PATIENT
  Age: 60 Year
  Sex: Female

DRUGS (1)
  1. LITHIUM. [Suspect]
     Active Substance: LITHIUM
     Dosage: 300 MG, 2X/DAY
     Route: 065

REACTIONS (3)
  - Atrioventricular block [Recovered/Resolved]
  - Toxicity to various agents [Recovered/Resolved]
  - Abnormal behaviour [Unknown]
